FAERS Safety Report 25966349 (Version 3)
Quarter: 2025Q4

REPORT INFORMATION
  Report Type: Report from Study
  Country: US (occurrence: US)
  Receive Date: 20251028
  Receipt Date: 20251127
  Transmission Date: 20260117
  Serious: Yes (Other)
  Sender: DECIPHERA PHARMACEUTICALS
  Company Number: US-DECIPHERA PHARMACEUTICALS LLC-2025US001332

PATIENT
  Age: 69 Year
  Sex: Female

DRUGS (1)
  1. ROMVIMZA [Suspect]
     Active Substance: VIMSELTINIB
     Indication: Giant cell tumour of tendon sheath
     Dosage: 30 MILLIGRAM, TWICE WEEKLY
     Dates: start: 20250912, end: 202511

REACTIONS (8)
  - Endometrial thickening [Unknown]
  - Eye swelling [Unknown]
  - Laboratory test abnormal [Unknown]
  - Weight increased [Unknown]
  - Head discomfort [Unknown]
  - Fluid retention [Unknown]
  - Periorbital swelling [Unknown]
  - Generalised oedema [Unknown]

NARRATIVE: CASE EVENT DATE: 20250101
